FAERS Safety Report 15005716 (Version 8)
Quarter: 2020Q4

REPORT INFORMATION
  Report Type: Spontaneous
  Country: SK (occurrence: SK)
  Receive Date: 20180613
  Receipt Date: 20201109
  Transmission Date: 20210113
  Serious: Yes (Hospitalization, Other)
  Sender: FDA-Public Use
  Company Number: PHHY2018SK018313

PATIENT
  Age: 70 Year
  Sex: Male

DRUGS (16)
  1. BISOPROLOL [Suspect]
     Active Substance: BISOPROLOL
     Indication: ATRIAL FIBRILLATION
     Dosage: 5 MG, QD
     Route: 065
  2. DABIGATRAN [Suspect]
     Active Substance: DABIGATRAN
     Indication: PROPHYLAXIS
     Dosage: 2 DF, UNK
     Route: 065
  3. DOXAZOSIN [Suspect]
     Active Substance: DOXAZOSIN MESYLATE
     Indication: PRODUCT USED FOR UNKNOWN INDICATION
     Dosage: 4 MG, QD
     Route: 065
  4. METFORMIN [Suspect]
     Active Substance: METFORMIN HYDROCHLORIDE
     Indication: DIABETES MELLITUS
     Dosage: 850 MG, BID
     Route: 065
  5. SPIRONOLACTONE. [Suspect]
     Active Substance: SPIRONOLACTONE
     Indication: HYPERTENSION
  6. ATORVASTATIN [Suspect]
     Active Substance: ATORVASTATIN
     Dosage: 25 MG, QD
     Route: 065
  7. AMIODARONE [Suspect]
     Active Substance: AMIODARONE
     Indication: PRODUCT USED FOR UNKNOWN INDICATION
     Dosage: 20 MG, QD
     Route: 065
  8. AMIODARONE [Suspect]
     Active Substance: AMIODARONE
     Dosage: 200 MG, QD
     Route: 065
  9. URAPIDIL [Suspect]
     Active Substance: URAPIDIL
     Indication: PRODUCT USED FOR UNKNOWN INDICATION
     Dosage: 60 MG, BID (60 MG IN THE MORNING AND 60 MG IN THE NIGHT)
     Route: 065
  10. ATORVASTATIN [Suspect]
     Active Substance: ATORVASTATIN
     Indication: PRODUCT USED FOR UNKNOWN INDICATION
     Dosage: 20 MG, QD
     Route: 065
  11. NITRENDIPINE [Suspect]
     Active Substance: NITRENDIPINE
     Indication: PROPHYLAXIS
     Dosage: 20 MG, QD
     Route: 065
  12. DABIGATRAN [Suspect]
     Active Substance: DABIGATRAN
     Dosage: 300 MG, QD
     Route: 065
  13. NIFEDIPINE. [Suspect]
     Active Substance: NIFEDIPINE
     Indication: PROPHYLAXIS
     Dosage: 20 MG, QD
     Route: 065
  14. TELMISARTAN. [Suspect]
     Active Substance: TELMISARTAN
     Indication: ATRIAL FIBRILLATION
     Dosage: 80 MG, QD (IN THE MORNING)
     Route: 048
  15. TELMISARTAN. [Suspect]
     Active Substance: TELMISARTAN
     Indication: HYPERTENSION
  16. SPIRONOLACTONE. [Suspect]
     Active Substance: SPIRONOLACTONE
     Indication: ATRIAL FIBRILLATION
     Dosage: 25 MG, QD
     Route: 048

REACTIONS (16)
  - Hydronephrosis [Unknown]
  - Calculus bladder [Unknown]
  - Renal failure [Unknown]
  - Dysuria [Unknown]
  - Urinary retention [Recovering/Resolving]
  - Asthenia [Unknown]
  - Postrenal failure [Recovering/Resolving]
  - Benign prostatic hyperplasia [Recovering/Resolving]
  - Atrial fibrillation [Recovered/Resolved]
  - Bladder dilatation [Unknown]
  - Coagulopathy [Recovering/Resolving]
  - Nephrolithiasis [Unknown]
  - Haematuria [Recovered/Resolved]
  - Acute kidney injury [Recovered/Resolved]
  - Urinary tract infection [Recovering/Resolving]
  - Pollakiuria [Unknown]
